APPROVED DRUG PRODUCT: IBUPROFEN AND DIPHENHYDRAMINE HYDROCHLORIDE
Active Ingredient: DIPHENHYDRAMINE HYDROCHLORIDE; IBUPROFEN
Strength: 25MG;EQ 200MG FREE ACID AND POTASSIUM SALT
Dosage Form/Route: CAPSULE;ORAL
Application: A210676 | Product #001
Applicant: AUROBINDO PHARMA LTD
Approved: Feb 14, 2019 | RLD: No | RS: No | Type: OTC